FAERS Safety Report 20842880 (Version 1)
Quarter: 2022Q2

REPORT INFORMATION
  Report Type: Spontaneous
  Country: US (occurrence: None)
  Receive Date: 20220517
  Receipt Date: 20220517
  Transmission Date: 20220720
  Serious: Yes (Hospitalization)
  Sender: FDA-Public Use
  Company Number: None

PATIENT
  Sex: Female
  Weight: 93.9 kg

DRUGS (3)
  1. TAXOL [Suspect]
     Active Substance: PACLITAXEL
  2. ARM A [Concomitant]
  3. PACLITAXEL WITH RADIUM-223 Dichloride [Concomitant]

REACTIONS (1)
  - Intestinal obstruction [None]

NARRATIVE: CASE EVENT DATE: 20220510
